FAERS Safety Report 16070670 (Version 1)
Quarter: 2019Q2

REPORT INFORMATION
  Report Type: Spontaneous
  Country: US (occurrence: US)
  Receive Date: 20190314
  Receipt Date: 20190314
  Transmission Date: 20190711
  Serious: Yes (Disabling)
  Sender: FDA-Public Use
  Company Number: None

PATIENT
  Age: 7 Year
  Sex: Male
  Weight: 37.35 kg

DRUGS (4)
  1. FLINTSTONE MULTI VITAMIN [Concomitant]
  2. GUANFACINE 1MG TABLETS [Suspect]
     Active Substance: GUANFACINE HYDROCHLORIDE
     Indication: ATTENTION DEFICIT/HYPERACTIVITY DISORDER
     Dosage: ?          QUANTITY:75 TABLET(S);?
     Route: 048
     Dates: start: 20180222
  3. RITALIN LA [Concomitant]
     Active Substance: METHYLPHENIDATE HYDROCHLORIDE
  4. GUANFACINE 1MG TABLETS [Suspect]
     Active Substance: GUANFACINE HYDROCHLORIDE
     Indication: OPPOSITIONAL DEFIANT DISORDER
     Dosage: ?          QUANTITY:75 TABLET(S);?
     Route: 048
     Dates: start: 20180222

REACTIONS (1)
  - Weight increased [None]

NARRATIVE: CASE EVENT DATE: 20190313
